FAERS Safety Report 14867487 (Version 1)
Quarter: 2018Q2

REPORT INFORMATION
  Report Type: Report from Study
  Country: US (occurrence: US)
  Receive Date: 20180508
  Receipt Date: 20180508
  Transmission Date: 20180711
  Serious: Yes (Hospitalization, Other)
  Sender: FDA-Public Use
  Company Number: US-GILEAD-2018-0336360

PATIENT
  Age: 74 Year
  Sex: Male

DRUGS (1)
  1. IDELALISIB [Suspect]
     Active Substance: IDELALISIB
     Indication: B-CELL LYMPHOMA
     Dosage: 150 MG, QD
     Route: 048
     Dates: start: 20180421, end: 20180426

REACTIONS (6)
  - Groin abscess [Recovering/Resolving]
  - Pain in extremity [Recovering/Resolving]
  - Peripheral swelling [Not Recovered/Not Resolved]
  - Abscess drainage [Not Recovered/Not Resolved]
  - Off label use [Not Recovered/Not Resolved]
  - Neoplasm [Recovering/Resolving]

NARRATIVE: CASE EVENT DATE: 201804
